FAERS Safety Report 15011117 (Version 1)
Quarter: 2018Q2

REPORT INFORMATION
  Report Type: Spontaneous
  Country: CA (occurrence: CA)
  Receive Date: 20180614
  Receipt Date: 20180614
  Transmission Date: 20180711
  Serious: Yes (Death)
  Sender: FDA-Public Use
  Company Number: CA-PFIZER INC-2017253424

PATIENT
  Age: 61 Year
  Sex: Female

DRUGS (9)
  1. IBRANCE [Suspect]
     Active Substance: PALBOCICLIB
     Indication: BREAST CANCER METASTATIC
     Dosage: 125 MG, CYCLIC (ONCE DAILY FOR 21 DAYS AND OFF FOR 7 DAYS)
     Route: 048
     Dates: start: 20170620, end: 2017
  2. SYNTHROID [Concomitant]
     Active Substance: LEVOTHYROXINE SODIUM
     Dosage: 0.5 MG, DAILY
  3. VITAMIN D3 [Concomitant]
     Active Substance: CHOLECALCIFEROL
     Dosage: UNK
  4. EXEMESTANE. [Concomitant]
     Active Substance: EXEMESTANE
     Dosage: UNK UNK, DAILY
  5. HYDROMORPHONE [Concomitant]
     Active Substance: HYDROMORPHONE
     Dosage: 9 MG, DAILY
  6. IBRANCE [Suspect]
     Active Substance: PALBOCICLIB
     Dosage: 125 MG, CYCLIC 1 TAB 1X/DAY, 5 DAYS A WEEK FOR  21 DAYS AND 7
     Route: 048
     Dates: start: 2017
  7. LOSEC [Concomitant]
     Active Substance: OMEPRAZOLE
     Dosage: 20 MG, DAILY
  8. CITALOPRAM [Concomitant]
     Active Substance: CITALOPRAM HYDROBROMIDE
     Dosage: 20 MG, DAILY
  9. TINZAPARIN [Concomitant]
     Active Substance: TINZAPARIN
     Dosage: UNK UNK, DAILY

REACTIONS (7)
  - Neoplasm progression [Unknown]
  - Death [Fatal]
  - Product use in unapproved indication [Unknown]
  - Nausea [Unknown]
  - Full blood count decreased [Unknown]
  - Malaise [Unknown]
  - White blood cell count decreased [Unknown]
